FAERS Safety Report 18763055 (Version 1)
Quarter: 2021Q1

REPORT INFORMATION
  Report Type: Spontaneous
  Country: US (occurrence: US)
  Receive Date: 20210120
  Receipt Date: 20210120
  Transmission Date: 20210419
  Serious: No
  Sender: FDA-Public Use
  Company Number: None

PATIENT
  Age: 52 Year
  Sex: Female
  Weight: 89.5 kg

DRUGS (4)
  1. TYLENOL 650 MG [Concomitant]
     Dates: start: 20200603
  2. SOLU?CORTEF 100 MG [Concomitant]
     Dates: start: 20200603
  3. TRUXIMA [Suspect]
     Active Substance: RITUXIMAB-ABBS
     Indication: RHEUMATOID ARTHRITIS
     Dosage: ?          OTHER FREQUENCY:EVERY 2 WEEKS;?
     Route: 041
     Dates: start: 20201216
  4. BENADRYL [Concomitant]
     Active Substance: DIPHENHYDRAMINE HYDROCHLORIDE
     Dates: start: 20200603

REACTIONS (3)
  - Hypotension [None]
  - Headache [None]
  - Sensation of foreign body [None]

NARRATIVE: CASE EVENT DATE: 20201231
